FAERS Safety Report 6133394-X (Version None)
Quarter: 2009Q1

REPORT INFORMATION
  Report Type: 
  Country: None (occurrence: None)
  Receive Date: 20090326
  Receipt Date: 20090323
  Transmission Date: 20090719
  Serious: Yes (Death)
  Sender: FDA-Public Use
  Company Number: PHHY2009BR10791

PATIENT
  Age: 74 Year
  Sex: Female

DRUGS (1)
  1. FORASEQ [Suspect]

REACTIONS (1)
  - BONE NEOPLASM MALIGNANT [None]
